FAERS Safety Report 17068005 (Version 1)
Quarter: 2019Q4

REPORT INFORMATION
  Report Type: Not Available
  Country: US (occurrence: US)
  Receive Date: 20191122
  Receipt Date: 20191122
  Transmission Date: 20200122
  Serious: Yes (Death)
  Sender: FDA-Public Use
  Company Number: US-NEUROCRINE BIOSCIENCES INC.-2019NBI03543

PATIENT
  Age: 60 Year
  Sex: Male

DRUGS (13)
  1. LATUDA [Concomitant]
     Active Substance: LURASIDONE HYDROCHLORIDE
  2. BENZTROPINE. [Concomitant]
     Active Substance: BENZTROPINE
  3. FISH OIL [Concomitant]
     Active Substance: FISH OIL
  4. LORAZEPAM. [Concomitant]
     Active Substance: LORAZEPAM
  5. ASPIRIN. [Concomitant]
     Active Substance: ASPIRIN
  6. MEMANTINE. [Concomitant]
     Active Substance: MEMANTINE
  7. ATORVASTATIN [Concomitant]
     Active Substance: ATORVASTATIN
  8. DONEPEZIL. [Concomitant]
     Active Substance: DONEPEZIL
  9. INGREZZA [Suspect]
     Active Substance: VALBENAZINE
     Indication: TARDIVE DYSKINESIA
     Route: 048
  10. VITAMIN B [Concomitant]
     Active Substance: VITAMIN B
  11. CARBIDOPA/LEVODOPA [Concomitant]
     Active Substance: CARBIDOPA\LEVODOPA
  12. MVI [Concomitant]
     Active Substance: VITAMINS
  13. FLOMAX [Concomitant]
     Active Substance: TAMSULOSIN HYDROCHLORIDE

REACTIONS (1)
  - Death [Fatal]

NARRATIVE: CASE EVENT DATE: 20191018
